FAERS Safety Report 4692962-2 (Version None)
Quarter: 2005Q2

REPORT INFORMATION
  Report Type: 
  Country: None (occurrence: None)
  Receive Date: 20050617
  Receipt Date: 20050606
  Transmission Date: 20051028
  Serious: Yes (Hospitalization, Other)
  Sender: FDA-Public Use
  Company Number: GB-JNJFOC-20050601583

PATIENT
  Sex: Female
  Weight: 73 kg

DRUGS (8)
  1. REMICADE [Suspect]
  2. METHOTREXATE [Concomitant]
  3. METHACARBAMOL [Concomitant]
  4. RELIFLEX [Concomitant]
  5. FOLIC ACID [Concomitant]
  6. AMITRIPTYLINE [Concomitant]
  7. TEMAZAEPAM [Concomitant]
  8. FYBOGEL [Concomitant]

REACTIONS (1)
  - DIVERTICULITIS [None]
